FAERS Safety Report 9422868 (Version 4)
Quarter: 2013Q3

REPORT INFORMATION
  Report Type: Report from Study
  Country: US (occurrence: US)
  Receive Date: 20130726
  Receipt Date: 20130925
  Transmission Date: 20140515
  Serious: No
  Sender: FDA-Public Use
  Company Number: US-VERTEX PHARMACEUTICALS INC-2013-008243

PATIENT
  Age: 49 Year
  Sex: Male

DRUGS (3)
  1. VX-950 (TELAPREVIR) [Suspect]
     Indication: HEPATITIS C
     Dosage: UNK
     Route: 048
     Dates: start: 20130716
  2. PEGASYS [Suspect]
     Indication: HEPATITIS C
     Dosage: UNK
     Dates: start: 20130716
  3. RIBAVIRIN [Suspect]
     Indication: HEPATITIS C
     Dosage: UNK
     Dates: start: 20130716

REACTIONS (10)
  - Dyspnoea [Unknown]
  - Headache [Unknown]
  - Testicular pain [Not Recovered/Not Resolved]
  - Injection site swelling [Unknown]
  - Injection site pain [Unknown]
  - Oropharyngeal pain [Unknown]
  - Appetite disorder [Unknown]
  - Fatigue [Unknown]
  - Anorectal discomfort [Not Recovered/Not Resolved]
  - Dysgeusia [Unknown]
